FAERS Safety Report 18451110 (Version 3)
Quarter: 2021Q4

REPORT INFORMATION
  Report Type: Spontaneous
  Country: US (occurrence: US)
  Receive Date: 20201101
  Receipt Date: 20211227
  Transmission Date: 20220303
  Serious: Yes (Other)
  Sender: FDA-Public Use
  Company Number: US-NAPPMUNDI-USA-2020-0154173

PATIENT
  Sex: Male

DRUGS (17)
  1. OXYCONTIN [Suspect]
     Active Substance: OXYCODONE HYDROCHLORIDE
     Indication: Neck injury
     Dosage: UNKNOWN
     Route: 048
     Dates: start: 201511
  2. OXYCONTIN [Suspect]
     Active Substance: OXYCODONE HYDROCHLORIDE
     Indication: Head injury
  3. OXYCODONE HYDROCHLORIDE [Suspect]
     Active Substance: OXYCODONE HYDROCHLORIDE
     Indication: Pain
     Dosage: 15 MG, Q8H PRN
     Route: 048
  4. OXYCODONE HYDROCHLORIDE [Suspect]
     Active Substance: OXYCODONE HYDROCHLORIDE
     Indication: Neck injury
     Dosage: UNKNOWN
     Route: 048
     Dates: start: 201511
  5. OXYCODONE HYDROCHLORIDE [Suspect]
     Active Substance: OXYCODONE HYDROCHLORIDE
     Indication: Head injury
  6. OXYCODONE HYDROCHLORIDE [Suspect]
     Active Substance: OXYCODONE HYDROCHLORIDE
     Indication: Ligament rupture
  7. HYDROMORPHONE [Suspect]
     Active Substance: HYDROMORPHONE
     Indication: Neck injury
     Dosage: UNKNOWN
     Route: 048
     Dates: start: 201511
  8. HYDROMORPHONE [Suspect]
     Active Substance: HYDROMORPHONE
     Indication: Head injury
  9. ACETAMINOPHEN\OXYCODONE HYDROCHLORIDE [Suspect]
     Active Substance: ACETAMINOPHEN\OXYCODONE HYDROCHLORIDE
     Indication: Head injury
     Dosage: (10-325 MG)
     Route: 048
  10. ACETAMINOPHEN\OXYCODONE HYDROCHLORIDE [Suspect]
     Active Substance: ACETAMINOPHEN\OXYCODONE HYDROCHLORIDE
     Indication: Neck injury
     Dosage: (5-325 MG)
     Route: 048
  11. ACETAMINOPHEN\OXYCODONE HYDROCHLORIDE [Suspect]
     Active Substance: ACETAMINOPHEN\OXYCODONE HYDROCHLORIDE
     Indication: Pain
     Dosage: UNKNOWN
     Route: 048
     Dates: start: 201511
  12. ENDOCET [Suspect]
     Active Substance: ACETAMINOPHEN\OXYCODONE HYDROCHLORIDE
     Indication: Pain
     Dosage: (10-325 MG), Q8H PRN
     Route: 065
  13. ENDOCET [Suspect]
     Active Substance: ACETAMINOPHEN\OXYCODONE HYDROCHLORIDE
     Indication: Neck injury
     Dosage: UNKNOWN
     Route: 065
     Dates: start: 201511
  14. ENDOCET [Suspect]
     Active Substance: ACETAMINOPHEN\OXYCODONE HYDROCHLORIDE
     Indication: Head injury
  15. ACETAMINOPHEN\OXYCODONE HYDROCHLORIDE\OXYCODONE TEREPHTHALATE [Suspect]
     Active Substance: ACETAMINOPHEN\OXYCODONE HYDROCHLORIDE\OXYCODONE TEREPHTHALATE
     Indication: Neck injury
     Dosage: UNKNOWN
     Route: 065
     Dates: start: 201511
  16. ACETAMINOPHEN\OXYCODONE HYDROCHLORIDE\OXYCODONE TEREPHTHALATE [Suspect]
     Active Substance: ACETAMINOPHEN\OXYCODONE HYDROCHLORIDE\OXYCODONE TEREPHTHALATE
     Indication: Head injury
  17. ACETAMINOPHEN\OXYCODONE HYDROCHLORIDE\OXYCODONE TEREPHTHALATE [Suspect]
     Active Substance: ACETAMINOPHEN\OXYCODONE HYDROCHLORIDE\OXYCODONE TEREPHTHALATE
     Indication: Ligament rupture

REACTIONS (5)
  - Drug dependence [Unknown]
  - Drug abuse [Unknown]
  - Pain [Unknown]
  - Emotional distress [Unknown]
  - Product prescribing error [Unknown]
